FAERS Safety Report 21973979 (Version 2)
Quarter: 2023Q1

REPORT INFORMATION
  Report Type: Spontaneous
  Country: US (occurrence: None)
  Receive Date: 20230209
  Receipt Date: 20230308
  Transmission Date: 20230417
  Serious: Yes (Other)
  Sender: FDA-Public Use
  Company Number: 2023A029825

PATIENT
  Age: 716 Month
  Sex: Male
  Weight: 68.9 kg

DRUGS (34)
  1. NEXIUM [Suspect]
     Active Substance: ESOMEPRAZOLE MAGNESIUM
     Route: 048
  2. OMEPRAZOLE [Concomitant]
     Active Substance: OMEPRAZOLE
  3. PANTOPRAZOLE [Concomitant]
     Active Substance: PANTOPRAZOLE
  4. DEXILANT [Concomitant]
     Active Substance: DEXLANSOPRAZOLE
  5. GABAPENTIN [Concomitant]
     Active Substance: GABAPENTIN
  6. COMBIVENT [Concomitant]
     Active Substance: ALBUTEROL SULFATE\IPRATROPIUM BROMIDE
  7. AMLODIPINE BESYLATE [Concomitant]
     Active Substance: AMLODIPINE BESYLATE
  8. METHYLPREDNISOLONE [Concomitant]
     Active Substance: METHYLPREDNISOLONE
  9. DOCUSATE SODIUM [Concomitant]
     Active Substance: DOCUSATE SODIUM
  10. GAVILYTE [Concomitant]
  11. MAGNESIUM CITRATE [Concomitant]
     Active Substance: MAGNESIUM CITRATE
  12. OLANZAPINE [Concomitant]
     Active Substance: OLANZAPINE
  13. LIDOCAINE [Concomitant]
     Active Substance: LIDOCAINE
  14. PROAIR HFA [Concomitant]
     Active Substance: ALBUTEROL SULFATE
  15. CLOTRIMAZOLE [Concomitant]
     Active Substance: CLOTRIMAZOLE
  16. ONDANSETRON HYDROCHLORIDE [Concomitant]
     Active Substance: ONDANSETRON HYDROCHLORIDE
  17. ACETAMINOPHEN\OXYCODONE HYDROCHLORIDE [Concomitant]
     Active Substance: ACETAMINOPHEN\OXYCODONE HYDROCHLORIDE
  18. SULFAMETHOXAZOLE\TRIMETHOPRIM [Concomitant]
     Active Substance: SULFAMETHOXAZOLE\TRIMETHOPRIM
  19. ASPIRIN\BUTALBITAL\CAFFEINE [Concomitant]
     Active Substance: ASPIRIN\BUTALBITAL\CAFFEINE
  20. UNSPECIFIED INGREDIENT [Concomitant]
     Active Substance: UNSPECIFIED INGREDIENT
  21. CEPHALEXIN [Concomitant]
     Active Substance: CEPHALEXIN
  22. MEGESTROL [Concomitant]
     Active Substance: MEGESTROL
  23. ARGININE ASPARTATE/CARNITINE HYDROCHLORIDE/CYPROHEPTADINE HYDROCHLORID [Concomitant]
  24. SUPREP BOWEL PREP [Concomitant]
     Active Substance: MAGNESIUM SULFATE\POTASSIUM SULFATE\SODIUM SULFATE
  25. METRONIDAZOLE [Concomitant]
     Active Substance: METRONIDAZOLE
  26. MELOXICAM [Concomitant]
     Active Substance: MELOXICAM
  27. AMOXICILLIN\CLAVULANATE POTASSIUM [Concomitant]
     Active Substance: AMOXICILLIN\CLAVULANATE POTASSIUM
  28. TAMIFLU [Concomitant]
     Active Substance: OSELTAMIVIR PHOSPHATE
  29. QUININE/AMINOPHENAZONE/SALICYLAMIDE/BROMPHENIRAMINE/ASCORBIC ACID [Concomitant]
  30. BISACODYL [Concomitant]
     Active Substance: BISACODYL
  31. SIMVASTATIN [Concomitant]
     Active Substance: SIMVASTATIN
  32. ASPIRIN [Concomitant]
     Active Substance: ASPIRIN
  33. AMITIZA [Concomitant]
     Active Substance: LUBIPROSTONE
  34. SUCRALFATE [Concomitant]
     Active Substance: SUCRALFATE

REACTIONS (1)
  - Gastric cancer [Unknown]

NARRATIVE: CASE EVENT DATE: 20200901
